FAERS Safety Report 7124243-1 (Version None)
Quarter: 2010Q4

REPORT INFORMATION
  Report Type: 
  Country: None (occurrence: None)
  Receive Date: 20101126
  Receipt Date: 20101115
  Transmission Date: 20110411
  Serious: Yes (Hospitalization)
  Sender: FDA-Public Use
  Company Number: GXKR2010ES12940

PATIENT
  Age: 63 Year
  Sex: Female

DRUGS (2)
  1. PIPERACILLIN+TAZOBACTAM (NGX) [Suspect]
     Indication: UROSEPSIS
     Dosage: 1500 MG/24 HOURS
     Route: 042
  2. PHENYTOIN [Concomitant]
     Indication: GRAND MAL CONVULSION
     Dosage: 300 MG/24H
     Route: 065

REACTIONS (5)
  - DEPRESSED LEVEL OF CONSCIOUSNESS [None]
  - GENERALISED NON-CONVULSIVE EPILEPSY [None]
  - LACK OF SPONTANEOUS SPEECH [None]
  - MENTAL DISORDER [None]
  - STUPOR [None]
